FAERS Safety Report 5815639-6 (Version None)
Quarter: 2008Q3

REPORT INFORMATION
  Report Type: 
  Country: None (occurrence: None)
  Receive Date: 20080716
  Receipt Date: 20080708
  Transmission Date: 20090109
  Serious: Yes (Other)
  Sender: FDA-Public Use
  Company Number: 163-21880-08060914

PATIENT
  Age: 73 Year
  Sex: Male

DRUGS (1)
  1. REVLIMID [Suspect]
     Indication: MULTIPLE MYELOMA
     Dosage: 15 MG, 21 DAY -} M, W, F, ORAL
     Route: 048
     Dates: start: 20080408, end: 20080523

REACTIONS (2)
  - HEART RATE IRREGULAR [None]
  - PALPITATIONS [None]
